FAERS Safety Report 7641020-3 (Version None)
Quarter: 2011Q3

REPORT INFORMATION
  Report Type: 
  Country: None (occurrence: None)
  Receive Date: 20110728
  Receipt Date: 20110722
  Transmission Date: 20111222
  Serious: Yes (Other)
  Sender: FDA-Public Use
  Company Number: US-SANOFI-AVENTIS-2011SA016746

PATIENT
  Age: 81 Year
  Sex: Female

DRUGS (3)
  1. SOLOSTAR [Suspect]
     Dosage: PRODUCT START DATE MENTIONED AS 2 YEARS AGO.
     Dates: start: 20080101
  2. NOVOLOG [Concomitant]
  3. LANTUS [Suspect]
     Dosage: PRODUCT START DATE MENTIONED AS 2 YEARS AGO. DOSE:15 UNIT(S)
     Route: 058
     Dates: start: 20080101

REACTIONS (5)
  - INJECTION SITE HAEMATOMA [None]
  - COLON OPERATION [None]
  - INJECTION SITE PAIN [None]
  - PRODUCT QUALITY ISSUE [None]
  - BLOOD GLUCOSE INCREASED [None]
